FAERS Safety Report 15265560 (Version 1)
Quarter: 2018Q3

REPORT INFORMATION
  Report Type: Report from Study
  Country: HN (occurrence: HN)
  Receive Date: 20180810
  Receipt Date: 20180810
  Transmission Date: 20181010
  Serious: Yes (Other)
  Sender: FDA-Public Use
  Company Number: PHHY2018HN066007

PATIENT
  Sex: Female

DRUGS (1)
  1. GLIVEC [Suspect]
     Active Substance: IMATINIB MESYLATE
     Indication: CHRONIC MYELOID LEUKAEMIA
     Dosage: 400 MG, QD
     Route: 048

REACTIONS (10)
  - Metastases to peritoneum [Unknown]
  - Pallor [Unknown]
  - Adenocarcinoma [Unknown]
  - Pleural effusion [Unknown]
  - General physical health deterioration [Unknown]
  - Second primary malignancy [Unknown]
  - Ovarian cyst [Unknown]
  - Dyspnoea [Unknown]
  - Metastases to pleura [Unknown]
  - Ascites [Unknown]
